FAERS Safety Report 6966347-X (Version None)
Quarter: 2010Q3

REPORT INFORMATION
  Report Type: 
  Country: None (occurrence: None)
  Receive Date: 20100903
  Receipt Date: 20100826
  Transmission Date: 20110219
  Serious: Yes (Hospitalization)
  Sender: FDA-Public Use
  Company Number: US-ROCHE-709869

PATIENT
  Sex: Female
  Weight: 61.2 kg

DRUGS (6)
  1. BONIVA [Suspect]
     Indication: OSTEOPOROSIS
     Route: 048
     Dates: start: 20060515, end: 20100423
  2. EPIPEN [Concomitant]
     Route: 030
     Dates: start: 20080421
  3. LEVOTHYROXINE [Concomitant]
     Route: 048
     Dates: start: 20050812
  4. ZOLPIDEM TARTRATE [Concomitant]
     Route: 048
     Dates: start: 20100525
  5. VITAMINE D [Concomitant]
     Route: 048
     Dates: start: 20090122
  6. TRAMADOL HCL [Concomitant]
     Route: 048
     Dates: start: 20100423

REACTIONS (2)
  - FEMUR FRACTURE [None]
  - STRESS FRACTURE [None]
